FAERS Safety Report 7422865-1 (Version None)
Quarter: 2011Q2

REPORT INFORMATION
  Report Type: 
  Country: None (occurrence: None)
  Receive Date: 20110419
  Receipt Date: 20110329
  Transmission Date: 20111010
  Serious: Yes (Other)
  Sender: FDA-Public Use
  Company Number: US-BAYER-200917654NA

PATIENT
  Age: 48 Year
  Sex: Female
  Weight: 94.331 kg

DRUGS (24)
  1. TRASYLOL [Suspect]
     Dosage: 200 ML, BOLUS
     Route: 042
     Dates: start: 20021226, end: 20021226
  2. ALBUTEROL [Concomitant]
     Dosage: AS NEEDED, INHALER
     Dates: start: 19970101
  3. SCOPOLAMINE [Concomitant]
     Dosage: .4
     Route: 042
     Dates: start: 20021226, end: 20021226
  4. VERSED [Concomitant]
     Dosage: 5 MG, UNK
     Route: 042
     Dates: start: 20021226, end: 20021226
  5. ADVAIR DISKUS 100/50 [Concomitant]
     Dosage: INHALER
  6. MANNITOL [Concomitant]
     Dosage: 12.5 G, UNK
     Route: 042
     Dates: start: 20021226, end: 20021226
  7. FENTANYL [Concomitant]
     Dosage: 1000 MCG
     Route: 042
     Dates: start: 20021226, end: 20021226
  8. HEPARIN [Concomitant]
     Dosage: 6 U, UNK
     Route: 042
     Dates: start: 20021226, end: 20021226
  9. VANCOMYCIN [Concomitant]
     Dosage: 1 G, UNK
     Route: 042
     Dates: start: 20021226, end: 20021226
  10. LASIX [Concomitant]
     Dosage: UNK
     Dates: start: 20021227, end: 20030103
  11. PROTAMINE SULFATE [Concomitant]
     Dosage: 150 MG, UNK
     Route: 042
     Dates: start: 20021226, end: 20021226
  12. OPTIRAY 350 [Concomitant]
     Dosage: 100 ML, UNK
     Dates: start: 20021206, end: 20021206
  13. ULTRAVIST 150 [Concomitant]
     Dosage: UNK
     Dates: start: 20021105, end: 20021105
  14. TRASYLOL [Suspect]
     Indication: AORTIC BYPASS
     Dosage: 200 ML, PRIMING
     Route: 042
     Dates: start: 20021226, end: 20021226
  15. SODIUM BICARBONATE [Concomitant]
     Dosage: 1 AMPS
     Route: 042
     Dates: start: 20021226, end: 20021226
  16. TRASYLOL [Suspect]
     Dosage: 50 ML, Q1HR
     Route: 042
     Dates: start: 20021226, end: 20021226
  17. LASIX [Concomitant]
     Dosage: 40 MG, UNK
     Route: 042
     Dates: start: 20021226, end: 20021226
  18. BLOOD AND RELATED PRODUCTS [Concomitant]
     Dosage: 4 U, UNK
     Route: 042
     Dates: start: 20021226
  19. TRASYLOL [Suspect]
     Indication: AORTIC VALVE REPLACEMENT
     Dosage: 2 ML, TEST DOSE
     Route: 042
     Dates: start: 20021226, end: 20021226
  20. TRASYLOL [Suspect]
     Dosage: 50 ML, Q1HR
     Route: 042
     Dates: start: 20021226, end: 20021226
  21. SINGULAIR [Concomitant]
     Dosage: 10 MG, QD
     Route: 048
     Dates: start: 19970101
  22. SOLU-MEDROL [Concomitant]
     Dosage: 1 G, UNK
     Route: 042
     Dates: start: 20021226, end: 20021226
  23. PAVULON [Concomitant]
     Dosage: 5 MG, UNK
     Route: 042
     Dates: start: 20021226, end: 20021226
  24. GENTAMICIN [Concomitant]
     Dosage: 180 MG, UNK
     Route: 042
     Dates: start: 20021226, end: 20021226

REACTIONS (9)
  - PAIN [None]
  - STRESS [None]
  - FEAR [None]
  - ANXIETY [None]
  - UNEVALUABLE EVENT [None]
  - RENAL IMPAIRMENT [None]
  - RENAL INJURY [None]
  - INJURY [None]
  - EMOTIONAL DISTRESS [None]
